FAERS Safety Report 8179406-3 (Version None)
Quarter: 2012Q1

REPORT INFORMATION
  Report Type: 
  Country: None (occurrence: None)
  Receive Date: 20120302
  Receipt Date: 20120227
  Transmission Date: 20120608
  Serious: Yes (Death, Other)
  Sender: FDA-Public Use
  Company Number: CHPA2012US003762

PATIENT
  Age: 52 Year
  Sex: Female

DRUGS (4)
  1. BETA BLOCKING AGENTS [Suspect]
     Dosage: UNK,UNK
     Route: 048
  2. PROPOXYPHENE HYDROCHLORIDE [Suspect]
     Dosage: UNK,UNK
     Route: 048
  3. ACETAMINOPHEN [Suspect]
     Dosage: UNK,UNK
     Route: 048
  4. ESCITALOPRAM [Suspect]
     Dosage: UNK,UNK
     Route: 048

REACTIONS (2)
  - CARDIO-RESPIRATORY ARREST [None]
  - COMPLETED SUICIDE [None]
